FAERS Safety Report 18497941 (Version 1)
Quarter: 2020Q4

REPORT INFORMATION
  Report Type: Spontaneous
  Country: DE (occurrence: DE)
  Receive Date: 20201112
  Receipt Date: 20201112
  Transmission Date: 20210114
  Serious: Yes (Life-Threatening, Hospitalization)
  Sender: FDA-Public Use
  Company Number: DE-TEVA-2020-DE-1847351

PATIENT
  Age: 88 Year
  Sex: Female
  Weight: 68 kg

DRUGS (2)
  1. METHOTREXAT [Suspect]
     Active Substance: METHOTREXATE
     Route: 058
  2. ELIQUIS [Suspect]
     Active Substance: APIXABAN
     Indication: ATRIAL FIBRILLATION
     Dosage: 2 DOSAGE FORMS ,DAILY DOSE: 2 DF DOSAGE FORM EVERY DAYS 2 SEPARATED DOSES
     Dates: start: 2018, end: 20200805

REACTIONS (3)
  - Haematoma [Not Recovered/Not Resolved]
  - Sepsis [Not Recovered/Not Resolved]
  - Skin exfoliation [Not Recovered/Not Resolved]

NARRATIVE: CASE EVENT DATE: 20200805
